FAERS Safety Report 7167454-1 (Version None)
Quarter: 2010Q4

REPORT INFORMATION
  Report Type: 
  Country: None (occurrence: None)
  Receive Date: 20101216
  Receipt Date: 20100105
  Transmission Date: 20110411
  Serious: No
  Sender: FDA-Public Use
  Company Number: A0837678A

PATIENT
  Age: 58 Year
  Sex: Female

DRUGS (2)
  1. NICOTINE POLACRILEX [Suspect]
     Dates: start: 20100104, end: 20100104
  2. NICORETTE [Suspect]

REACTIONS (3)
  - ORAL DISCOMFORT [None]
  - ORAL PAIN [None]
  - THROAT IRRITATION [None]
